FAERS Safety Report 10518464 (Version 3)
Quarter: 2015Q1

REPORT INFORMATION
  Report Type: Spontaneous
  Country: FR (occurrence: FR)
  Receive Date: 20141015
  Receipt Date: 20150321
  Transmission Date: 20150720
  Serious: Yes (Death, Hospitalization, Other)
  Sender: FDA-Public Use
  Company Number: FR-AMGEN-FRASP2014077424

PATIENT
  Age: 42 Year
  Sex: Male

DRUGS (9)
  1. SUTENT [Suspect]
     Active Substance: SUNITINIB MALATE
     Indication: RENAL CANCER
     Dosage: 50 MG, UNK
     Route: 048
     Dates: start: 201201, end: 201211
  2. INLYTA [Concomitant]
     Active Substance: AXITINIB
  3. DOLIPRANE [Concomitant]
     Active Substance: ACETAMINOPHEN
  4. XGEVA [Suspect]
     Active Substance: DENOSUMAB
     Indication: METASTASIS
     Dosage: 120 MG, UNK
     Route: 058
     Dates: start: 20130606, end: 201308
  5. ZOMETA [Suspect]
     Active Substance: ZOLEDRONIC ACID
     Indication: RENAL CANCER
     Dosage: UNK
     Route: 042
     Dates: start: 201301, end: 201308
  6. AUGMENTIN [Concomitant]
     Active Substance: AMOXICILLIN\CLAVULANATE POTASSIUM
     Indication: TOOTH ABSCESS
  7. DUROGESIC [Concomitant]
     Active Substance: FENTANYL
  8. ACTISKENAN [Concomitant]
     Active Substance: MORPHINE SULFATE
  9. LYRICA [Concomitant]
     Active Substance: PREGABALIN

REACTIONS (3)
  - Osteonecrosis [Recovered/Resolved]
  - Jaw disorder [Unknown]
  - Renal cancer [Fatal]

NARRATIVE: CASE EVENT DATE: 20130808
